FAERS Safety Report 5163216-5 (Version None)
Quarter: 2006Q4

REPORT INFORMATION
  Report Type: 
  Country: None (occurrence: None)
  Receive Date: 20061121
  Receipt Date: 20061106
  Transmission Date: 20070319
  Serious: Yes (Hospitalization)
  Sender: FDA-Public Use
  Company Number: 2006002112

PATIENT
  Age: 64 Year
  Sex: Male

DRUGS (4)
  1. ERLOTINIB (TABLET) [Suspect]
     Indication: COLON CANCER METASTATIC
     Dosage: 150 MG (QD) ORAL
     Route: 048
  2. TOPOTECAN (TOPOTECAN) (INJECTION FOR INFUSION) [Suspect]
     Indication: COLON CANCER METASTATIC
     Dosage: 1.0 MG/M2 INTRAVENOUS
     Route: 042
     Dates: start: 20061009
  3. LEVAQUIN [Concomitant]
  4. PAXIL [Concomitant]

REACTIONS (11)
  - ANAEMIA [None]
  - CHEST PAIN [None]
  - ELECTROCARDIOGRAM ST SEGMENT ABNORMAL [None]
  - ELECTROCARDIOGRAM T WAVE ABNORMAL [None]
  - HEART RATE INCREASED [None]
  - HYPOVENTILATION [None]
  - MYOCARDIAL ISCHAEMIA [None]
  - OXYGEN SATURATION DECREASED [None]
  - QRS AXIS ABNORMAL [None]
  - RESPIRATORY RATE INCREASED [None]
  - WHITE BLOOD CELL COUNT DECREASED [None]
